FAERS Safety Report 13786708 (Version 2)
Quarter: 2017Q3

REPORT INFORMATION
  Report Type: Report from Study
  Country: US (occurrence: US)
  Receive Date: 20170725
  Receipt Date: 20170728
  Transmission Date: 20171127
  Serious: Yes (Other)
  Sender: FDA-Public Use
  Company Number: US-AMGEN-USASL2017108800

PATIENT
  Age: 61 Year
  Sex: Female

DRUGS (2)
  1. REPATHA [Suspect]
     Active Substance: EVOLOCUMAB
     Indication: BLOOD CHOLESTEROL INCREASED
     Dosage: 140 MG, Q2WK
     Route: 065
     Dates: start: 201702
  2. NOVOLOG [Concomitant]
     Active Substance: INSULIN ASPART
     Indication: DIABETES MELLITUS
     Dosage: 70/30

REACTIONS (9)
  - Muscle spasms [Unknown]
  - Injection site swelling [Recovered/Resolved]
  - Hypoaesthesia [Unknown]
  - Cognitive disorder [Unknown]
  - Memory impairment [Unknown]
  - Blood glucose decreased [Unknown]
  - Injection site haemorrhage [Unknown]
  - Gait disturbance [Unknown]
  - Vision blurred [Not Recovered/Not Resolved]

NARRATIVE: CASE EVENT DATE: 2017
